FAERS Safety Report 19867101 (Version 1)
Quarter: 2021Q3

REPORT INFORMATION
  Report Type: Spontaneous
  Country: SK (occurrence: SK)
  Receive Date: 20210922
  Receipt Date: 20210922
  Transmission Date: 20211014
  Serious: Yes (Other)
  Sender: FDA-Public Use
  Company Number: SK-BIOVITRUM-2021SK8508

PATIENT
  Age: 30 Year
  Sex: Female

DRUGS (1)
  1. ANAKINRA [Suspect]
     Active Substance: ANAKINRA
     Indication: MEVALONATE KINASE DEFICIENCY

REACTIONS (3)
  - Off label use [Unknown]
  - Seizure [Unknown]
  - Local reaction [Unknown]
